FAERS Safety Report 9866170 (Version 1)
Quarter: 2014Q1

REPORT INFORMATION
  Report Type: Spontaneous
  Country: US (occurrence: US)
  Receive Date: 20140203
  Receipt Date: 20140203
  Transmission Date: 20141002
  Serious: No
  Sender: FDA-Public Use
  Company Number: US-ALLERGAN-1318530US

PATIENT
  Sex: Female

DRUGS (4)
  1. RESTASIS [Suspect]
     Indication: DRY EYE
     Dosage: UNK
     Dates: start: 20130701, end: 20131001
  2. MEDICATION FOR HYPERTENSION NOS [Concomitant]
     Indication: HYPERTENSION
     Dosage: UNK
  3. MEDICALTION FOR CHOLESTEROL NOS [Concomitant]
     Indication: BLOOD CHOLESTEROL
     Dosage: UNK
  4. SEVERAL DIFFERENT OTC NATURAL TEARS NOS [Concomitant]
     Indication: DRY EYE
     Dosage: UNK

REACTIONS (1)
  - Drug ineffective [Unknown]
